FAERS Safety Report 8501427-9 (Version None)
Quarter: 2012Q3

REPORT INFORMATION
  Report Type: 
  Country: None (occurrence: None)
  Receive Date: 20120710
  Receipt Date: 20120704
  Transmission Date: 20120928
  Serious: Yes (Other)
  Sender: FDA-Public Use
  Company Number: CA-ROCHE-1085033

PATIENT
  Sex: Female
  Weight: 76.272 kg

DRUGS (9)
  1. PREDNISONE [Concomitant]
  2. CELEBREX [Concomitant]
  3. FOLIC ACID [Concomitant]
  4. MABTHERA [Suspect]
     Indication: RHEUMATOID ARTHRITIS
     Route: 042
     Dates: start: 20090831, end: 20111212
  5. VITAMIN D [Concomitant]
  6. PREMARIN [Concomitant]
  7. ASCORBIC ACID [Concomitant]
  8. CALCIUM [Concomitant]
  9. ACTONEL [Concomitant]

REACTIONS (1)
  - FOOT OPERATION [None]
